FAERS Safety Report 21574247 (Version 2)
Quarter: 2022Q4

REPORT INFORMATION
  Report Type: Spontaneous
  Country: ES (occurrence: ES)
  Receive Date: 20221109
  Receipt Date: 20221129
  Transmission Date: 20230112
  Serious: Yes (Other)
  Sender: FDA-Public Use
  Company Number: ES-TEVA-2022-ES-2824346

PATIENT
  Age: 78 Year
  Sex: Female

DRUGS (10)
  1. CIPROFLOXACIN [Suspect]
     Active Substance: CIPROFLOXACIN
     Indication: Staphylococcal infection
     Route: 065
  2. CIPROFLOXACIN [Suspect]
     Active Substance: CIPROFLOXACIN
     Indication: Arthritis infective
  3. LEVOFLOXACIN [Suspect]
     Active Substance: LEVOFLOXACIN
     Indication: Arthritis infective
     Route: 065
  4. LEVOFLOXACIN [Suspect]
     Active Substance: LEVOFLOXACIN
     Indication: Staphylococcal infection
  5. METHICILLIN [Suspect]
     Active Substance: METHICILLIN
     Indication: Arthritis infective
     Route: 065
  6. METHICILLIN [Suspect]
     Active Substance: METHICILLIN
     Indication: Staphylococcal infection
  7. ERYTHROMYCIN [Suspect]
     Active Substance: ERYTHROMYCIN
     Indication: Arthritis infective
     Route: 065
  8. ERYTHROMYCIN [Suspect]
     Active Substance: ERYTHROMYCIN
     Indication: Staphylococcal infection
  9. PENICILLIN [Suspect]
     Active Substance: PENICILLIN
     Indication: Arthritis infective
     Route: 065
  10. PENICILLIN [Suspect]
     Active Substance: PENICILLIN
     Indication: Staphylococcal infection

REACTIONS (1)
  - Pathogen resistance [Unknown]
